FAERS Safety Report 6410893-4 (Version None)
Quarter: 2009Q4

REPORT INFORMATION
  Report Type: 
  Country: None (occurrence: None)
  Receive Date: 20091022
  Receipt Date: 20091015
  Transmission Date: 20100525
  Serious: Yes (Hospitalization)
  Sender: FDA-Public Use
  Company Number: FR-NOVOPROD-282571

PATIENT
  Sex: Male

DRUGS (12)
  1. NOVONORM [Suspect]
     Indication: TYPE 2 DIABETES MELLITUS
     Dosage: .5 MG, BID
     Route: 048
  2. CARDENSIEL [Suspect]
  3. HEMIGOXINE NATIVELLE [Suspect]
     Indication: CARDIAC FAILURE
     Dosage: .125 MG, QD
     Route: 048
  4. DILTIAZEM [Suspect]
     Dosage: 300 MG, QD
     Route: 048
  5. LERCANIDIPINE [Suspect]
     Indication: HYPERTENSION
     Dosage: 10 MG, QD
     Route: 048
  6. PERMIXON                           /00833501/ [Suspect]
     Indication: MICTURITION DISORDER
     Dosage: 160 MG, BID
     Route: 048
  7. AVODART [Suspect]
     Indication: BENIGN PROSTATIC HYPERPLASIA
     Dosage: .5 MG, QD
     Route: 048
  8. LASIX [Suspect]
     Indication: OEDEMA
     Dosage: 80 MG, QD
     Route: 048
  9. PREVISCAN                          /00261401/ [Suspect]
     Indication: PULMONARY EMBOLISM
     Dosage: 15 MG, QD
     Route: 048
  10. AUGMENTIN '125' [Suspect]
     Indication: RESPIRATORY TRACT INFECTION
     Dates: start: 20080201
  11. TAVANIC [Suspect]
     Indication: RESPIRATORY TRACT INFECTION
     Dates: start: 20080201
  12. ROCEPHIN [Suspect]
     Indication: RESPIRATORY TRACT INFECTION
     Dates: start: 20080201

REACTIONS (1)
  - ECZEMA [None]
